FAERS Safety Report 7011993-0 (Version None)
Quarter: 2010Q3

REPORT INFORMATION
  Report Type: 
  Country: None (occurrence: None)
  Receive Date: 20100924
  Receipt Date: 20100914
  Transmission Date: 20110219
  Serious: Yes (Hospitalization)
  Sender: FDA-Public Use
  Company Number: PHHY2010VE59936

PATIENT
  Sex: Female

DRUGS (11)
  1. ACLASTA [Suspect]
     Indication: OSTEOPOROSIS
     Dosage: 5MG/100ML
     Route: 042
     Dates: start: 20100512
  2. PIROXICAM [Concomitant]
     Indication: PAIN
     Route: 030
  3. KENACORT [Concomitant]
     Indication: PAIN
     Route: 030
  4. LOVAZA [Concomitant]
     Indication: BLOOD CHOLESTEROL
     Dosage: TWO CAPSULES DAILY
     Route: 048
     Dates: start: 20060101
  5. CALCIUM [Concomitant]
     Dosage: 500 MG (THREE TABLETS DAILY)
     Dates: start: 20030101
  6. PLAVIX [Concomitant]
     Dosage: 75 MG, QD
     Dates: start: 20100904
  7. OMEPRAZOLE [Concomitant]
     Dosage: ONCE DAILY
     Dates: start: 20100904
  8. VASTAREL ^BIOPHARMA^ [Concomitant]
     Dosage: TWICE DAILY
     Dates: start: 20100904
  9. ADALAT [Concomitant]
     Dosage: 20 MG,
     Route: 048
     Dates: start: 20100904
  10. LIPITOR [Concomitant]
     Dosage: 40 MG, UNK
     Route: 048
     Dates: start: 20100904
  11. CLONAC [Concomitant]
     Dosage: ONCE DAILY
     Dates: start: 20100904

REACTIONS (3)
  - ANGINA UNSTABLE [None]
  - CALCIUM DEFICIENCY [None]
  - MUSCLE RIGIDITY [None]
